FAERS Safety Report 4959145-X (Version None)
Quarter: 2006Q1

REPORT INFORMATION
  Report Type: 
  Country: None (occurrence: None)
  Receive Date: 20060127
  Receipt Date: 20050223
  Transmission Date: 20060701
  Serious: Yes (Death)
  Sender: FDA-Public Use
  Company Number: 05-02-0351

PATIENT
  Age: 83 Year
  Sex: Male

DRUGS (1)
  1. CLOZAPINE [Suspect]
     Dosage: 12.5-50MG QD, ORAL
     Route: 048
     Dates: start: 20020601, end: 20050201

REACTIONS (1)
  - NO ADVERSE DRUG EFFECT [None]
